FAERS Safety Report 4919392-X (Version None)
Quarter: 2006Q1

REPORT INFORMATION
  Report Type: 
  Country: None (occurrence: None)
  Receive Date: 20060222
  Receipt Date: 20050930
  Transmission Date: 20060701
  Serious: Yes (Death, Hospitalization)
  Sender: FDA-Public Use
  Company Number: US-MERCK-0510USA00738

PATIENT
  Age: 83 Year
  Sex: Male
  Weight: 68 kg

DRUGS (11)
  1. VIOXX [Suspect]
     Indication: ARTHRITIS
     Route: 048
     Dates: start: 20010406, end: 20010601
  2. VIOXX [Suspect]
     Indication: OSTEOARTHRITIS
     Route: 048
     Dates: start: 20010406, end: 20010601
  3. ACCUPRIL [Concomitant]
     Route: 065
  4. CARDIZEM [Concomitant]
     Route: 065
  5. FERROUS SULFATE [Concomitant]
     Route: 065
  6. K-DUR 10 [Concomitant]
     Route: 065
  7. LEVAQUIN [Concomitant]
     Route: 065
  8. PREVACID [Concomitant]
     Route: 065
  9. PRILOSEC [Concomitant]
     Route: 065
  10. PROPRANOLOL HYDROCHLORIDE [Concomitant]
     Route: 065
  11. XANAX [Concomitant]
     Route: 065

REACTIONS (15)
  - ACUTE MYOCARDIAL INFARCTION [None]
  - ADENOMA BENIGN [None]
  - CORONARY ARTERY DISEASE [None]
  - DISSEMINATED INTRAVASCULAR COAGULATION [None]
  - GASTROINTESTINAL DISORDER [None]
  - MASS [None]
  - OBSTRUCTION [None]
  - PYREXIA [None]
  - RENAL FAILURE [None]
  - SEPSIS [None]
  - THERAPEUTIC AGENT TOXICITY [None]
  - THROMBOCYTOPENIA [None]
  - UPPER GASTROINTESTINAL HAEMORRHAGE [None]
  - UROSEPSIS [None]
  - VENTRICULAR TACHYCARDIA [None]
